FAERS Safety Report 8154990 (Version 4)
Quarter: 2013Q2

REPORT INFORMATION
  Report Type: Spontaneous
  Country: JP (occurrence: JP)
  Receive Date: 20110926
  Receipt Date: 20130412
  Transmission Date: 20140414
  Serious: Yes (Hospitalization, Other)
  Sender: FDA-Public Use
  Company Number: JP-SHIRE-ALL1-2011-03537

PATIENT
  Age: 82 Year
  Sex: Male

DRUGS (8)
  1. FOSRENOL [Suspect]
     Indication: HYPERPHOSPHATAEMIA
     Dosage: 750 MG, OTHER (IMMEDIATELY AFTER MEALS)
     Route: 048
     Dates: start: 20091006, end: 20101115
  2. CALTAN [Concomitant]
     Indication: HYPERPHOSPHATAEMIA
     Dosage: 3 G, UNKNOWN
     Route: 048
  3. ALFAROL [Concomitant]
     Indication: PRODUCT USED FOR UNKNOWN INDICATION
     Dosage: 0.5 ?G, UNKNOWN
     Route: 048
     Dates: start: 20080724
  4. ALLOZYM [Concomitant]
     Indication: PRODUCT USED FOR UNKNOWN INDICATION
     Dosage: 100 MG, UNKNOWN
     Route: 048
  5. LASIX                              /00032601/ [Concomitant]
     Indication: PRODUCT USED FOR UNKNOWN INDICATION
     Dosage: 40 MG, UNKNOWN
     Route: 048
  6. VASOLAN                            /00014302/ [Concomitant]
     Indication: SUPRAVENTRICULAR TACHYCARDIA
     Dosage: 80 MG, UNKNOWN
     Route: 048
  7. ATARAX-P                           /00058402/ [Concomitant]
     Indication: PRURITUS
     Dosage: 25 MG, UNKNOWN
     Route: 048
  8. ANTIPYRETIC ANALGESICS [Concomitant]
     Indication: LUMBAR VERTEBRAL FRACTURE
     Dosage: UNK, UNKNOWN
     Route: 065

REACTIONS (3)
  - Large intestine perforation [Unknown]
  - Traumatic fracture [Unknown]
  - Fall [Recovered/Resolved]
